FAERS Safety Report 6490108-1 (Version None)
Quarter: 2009Q4

REPORT INFORMATION
  Report Type: 
  Country: None (occurrence: None)
  Receive Date: 20091211
  Receipt Date: 20090317
  Transmission Date: 20100525
  Serious: No
  Sender: FDA-Public Use
  Company Number: A0774898A

PATIENT
  Age: 67 Year
  Sex: Female

DRUGS (4)
  1. FLONASE [Suspect]
     Route: 045
  2. FLUTICASONE [Suspect]
     Route: 065
     Dates: start: 20080101, end: 20090201
  3. CLARITIN [Suspect]
     Route: 048
     Dates: end: 20090226
  4. METAMIZOLE SODIUM [Concomitant]

REACTIONS (2)
  - AGEUSIA [None]
  - PAROSMIA [None]
